FAERS Safety Report 12391620 (Version 1)
Quarter: 2016Q2

REPORT INFORMATION
  Report Type: Spontaneous
  Country: US (occurrence: US)
  Receive Date: 20160521
  Receipt Date: 20160521
  Transmission Date: 20160815
  Serious: Yes (Death, Other)
  Sender: FDA-Public Use
  Company Number: US-AMGEN-USASP2016065016

PATIENT
  Sex: Female

DRUGS (1)
  1. KYPROLIS [Suspect]
     Active Substance: CARFILZOMIB
     Indication: PLASMA CELL MYELOMA
     Dosage: UNK
     Route: 065

REACTIONS (2)
  - Bradycardia [Recovered/Resolved]
  - Death [Fatal]

NARRATIVE: CASE EVENT DATE: 2015
